FAERS Safety Report 19691791 (Version 6)
Quarter: 2022Q1

REPORT INFORMATION
  Report Type: Report from Study
  Country: CN (occurrence: None)
  Receive Date: 20210812
  Receipt Date: 20220120
  Transmission Date: 20220423
  Serious: Yes (Hospitalization)
  Sender: FDA-Public Use
  Company Number: CN-ROCHE-2883940

PATIENT
  Age: 55 Year
  Sex: Female
  Weight: 63 kg

DRUGS (10)
  1. PLACEBO [Suspect]
     Active Substance: UNSPECIFIED INGREDIENT
     Indication: Rheumatoid arthritis
     Route: 048
     Dates: start: 20210428
  2. TOCILIZUMAB [Suspect]
     Active Substance: TOCILIZUMAB
     Indication: Rheumatoid arthritis
     Dosage: ON 06/JUL/2021, SHE RECEIVED MOST RECENT DOSE OF STUDY DRUG PRIOR TO ADVERSE EVENT. ON 21/JUL/2021,
     Route: 058
     Dates: start: 20210427
  3. FOLIC ACID [Concomitant]
     Active Substance: FOLIC ACID
     Indication: Prophylaxis
     Dosage: ONGOING: YES
     Dates: start: 20210119
  4. MELOXICAM [Concomitant]
     Active Substance: MELOXICAM
     Indication: Rheumatoid arthritis
     Dosage: ONGOING: YES
     Route: 048
     Dates: start: 20210119
  5. ALFACALCIDOL [Concomitant]
     Active Substance: ALFACALCIDOL
     Indication: Prophylaxis
     Dates: start: 20210219
  6. GINKGO [Concomitant]
     Active Substance: GINKGO
     Route: 042
     Dates: start: 20210722, end: 20210801
  7. VITAMIN B6 [Concomitant]
     Active Substance: PYRIDOXINE HYDROCHLORIDE
     Route: 042
     Dates: start: 20210722, end: 20210801
  8. BETAHISTINE HYDROCHLORIDE [Concomitant]
     Active Substance: BETAHISTINE HYDROCHLORIDE
     Route: 042
     Dates: start: 20210722, end: 20210801
  9. CAPTOPRIL [Concomitant]
     Active Substance: CAPTOPRIL
     Route: 048
     Dates: start: 20210801, end: 20210803
  10. VITAMIN C [Concomitant]
     Active Substance: ASCORBIC ACID
     Route: 042
     Dates: start: 20210722, end: 20210801

REACTIONS (1)
  - Cerebral infarction [Recovered/Resolved]

NARRATIVE: CASE EVENT DATE: 20210701
